FAERS Safety Report 13659334 (Version 1)
Quarter: 2017Q2

REPORT INFORMATION
  Report Type: Spontaneous
  Country: US (occurrence: US)
  Receive Date: 20170615
  Receipt Date: 20170615
  Transmission Date: 20170830
  Serious: Yes (Other)
  Sender: FDA-Public Use
  Company Number: None

PATIENT
  Age: 38 Year
  Sex: Male
  Weight: 78.75 kg

DRUGS (1)
  1. BUPRENORPHINE. [Suspect]
     Active Substance: BUPRENORPHINE
     Indication: DRUG USE DISORDER
     Route: 060
     Dates: start: 20170307, end: 20170615

REACTIONS (4)
  - Diarrhoea [None]
  - Abdominal pain [None]
  - Back pain [None]
  - Urticaria [None]

NARRATIVE: CASE EVENT DATE: 20170307
